FAERS Safety Report 21459661 (Version 2)
Quarter: 2022Q4

REPORT INFORMATION
  Report Type: Spontaneous
  Country: JP (occurrence: JP)
  Receive Date: 20221014
  Receipt Date: 20221117
  Transmission Date: 20230113
  Serious: Yes (Life-Threatening, Hospitalization, Other)
  Sender: FDA-Public Use
  Company Number: JP-BAYER-2022A140503

PATIENT
  Age: 85 Year
  Sex: Female

DRUGS (3)
  1. XARELTO [Suspect]
     Active Substance: RIVAROXABAN
     Indication: Atrial fibrillation
     Dosage: UNK
     Route: 048
     Dates: start: 2010, end: 20221005
  2. IOPAMIDOL [Concomitant]
     Active Substance: IOPAMIDOL
     Indication: Computerised tomogram thorax
     Dosage: 80 ML, ONCE
     Dates: start: 20221004, end: 20221004
  3. IOPAMIDOL [Concomitant]
     Active Substance: IOPAMIDOL
     Indication: Haemoptysis

REACTIONS (16)
  - Pulmonary haemorrhage [Recovering/Resolving]
  - Bronchial haemorrhage [Unknown]
  - Pulmonary congestion [Recovering/Resolving]
  - Haemoptysis [Recovering/Resolving]
  - Cough [Recovering/Resolving]
  - Haemoptysis [Recovering/Resolving]
  - Acute respiratory failure [Recovering/Resolving]
  - Wheezing [Recovering/Resolving]
  - Carbon dioxide increased [Recovering/Resolving]
  - Effusion [Recovering/Resolving]
  - Pleural effusion [Recovering/Resolving]
  - Atelectasis [Recovering/Resolving]
  - Pulmonary septal thickening [Recovering/Resolving]
  - Vasodilatation [Recovering/Resolving]
  - Thrombosis [Recovering/Resolving]
  - Normocytic anaemia [Recovering/Resolving]

NARRATIVE: CASE EVENT DATE: 20220501
